FAERS Safety Report 25245294 (Version 1)
Quarter: 2025Q2

REPORT INFORMATION
  Report Type: Spontaneous
  Country: CN (occurrence: CN)
  Receive Date: 20250428
  Receipt Date: 20250428
  Transmission Date: 20250717
  Serious: Yes (Death, Other)
  Sender: AMGEN
  Company Number: CN-AMGEN-CHNSP2025081768

PATIENT
  Sex: Male

DRUGS (9)
  1. BLINATUMOMAB [Suspect]
     Active Substance: BLINATUMOMAB
     Indication: B-cell type acute leukaemia
     Route: 065
  2. VINCRISTINE [Concomitant]
     Active Substance: VINCRISTINE
  3. IDARUBICIN [Concomitant]
     Active Substance: IDARUBICIN
  4. CYCLOPHOSPHAMIDE [Concomitant]
     Active Substance: CYCLOPHOSPHAMIDE
  5. PREDNISONE [Concomitant]
     Active Substance: PREDNISONE
  6. INOTUZUMAB OZOGAMICIN [Concomitant]
     Active Substance: INOTUZUMAB OZOGAMICIN
  7. DOXORUBICIN [Concomitant]
     Active Substance: DOXORUBICIN
  8. METHOTREXATE [Concomitant]
     Active Substance: METHOTREXATE
  9. CYTARABINE [Concomitant]
     Active Substance: CYTARABINE

REACTIONS (2)
  - Death [Fatal]
  - Acute lymphocytic leukaemia recurrent [Unknown]
